FAERS Safety Report 8695602 (Version 2)
Quarter: 2013Q4

REPORT INFORMATION
  Report Type: Spontaneous
  Country: US (occurrence: US)
  Receive Date: 20120731
  Receipt Date: 20131101
  Transmission Date: 20140711
  Serious: Yes (Hospitalization, Other)
  Sender: FDA-Public Use
  Company Number: US-009507513-1207USA010500

PATIENT
  Sex: Female

DRUGS (9)
  1. ZOCOR [Suspect]
     Route: 048
  2. AZD6140 [Suspect]
     Dosage: UNK
     Route: 048
  3. METFORMIN [Suspect]
     Route: 048
  4. PANTOPRAZOLE [Suspect]
  5. RAMIPRIL [Suspect]
     Route: 048
  6. BISOPROLOL [Suspect]
     Route: 048
  7. LEVOTHYROXINE SODIUM [Suspect]
     Route: 048
  8. ASPIRIN [Suspect]
     Route: 048
  9. AMLODIPINE [Suspect]
     Route: 048

REACTIONS (1)
  - Angioedema [Unknown]
